FAERS Safety Report 8415724-9 (Version None)
Quarter: 2012Q2

REPORT INFORMATION
  Report Type: 
  Country: None (occurrence: None)
  Receive Date: 20120323
  Receipt Date: 20110405
  Transmission Date: 20120825
  Serious: Yes (Other)
  Sender: FDA-Public Use
  Company Number: 163-21880-11022063

PATIENT
  Age: 61 Year
  Sex: Female
  Weight: 113.8529 kg

DRUGS (16)
  1. POTASSIUM CHLORIDE [Concomitant]
  2. ACYCLOVIR [Concomitant]
  3. NAPROSYN [Concomitant]
  4. TRAZODONE HCL [Concomitant]
  5. COLESTID [Concomitant]
  6. WARFARIN SODIUM [Concomitant]
  7. ZOMETA [Concomitant]
  8. REVLIMID [Suspect]
     Indication: MULTIPLE MYELOMA
     Dosage: 10 MG, DAILY, PO ; 10 MG, MONDAY TO FRIDAY, PO ; 10 MG, MONDAY TO FRIDAY, PO
     Route: 048
     Dates: start: 20100512
  9. REVLIMID [Suspect]
     Indication: MULTIPLE MYELOMA
     Dosage: 10 MG, DAILY, PO ; 10 MG, MONDAY TO FRIDAY, PO ; 10 MG, MONDAY TO FRIDAY, PO
     Route: 048
     Dates: start: 20100720, end: 20110114
  10. REVLIMID [Suspect]
     Indication: MULTIPLE MYELOMA
     Dosage: 10 MG, DAILY, PO ; 10 MG, MONDAY TO FRIDAY, PO ; 10 MG, MONDAY TO FRIDAY, PO
     Route: 048
     Dates: start: 20110118
  11. NEURONTIN [Concomitant]
  12. OXYCODONE HCL [Concomitant]
  13. IVIG (IMMUNOGLOBULIN) [Concomitant]
  14. OMEPRAZOLE [Concomitant]
  15. LOVENOX [Concomitant]
  16. FLUIDS (I.V. SOLUTIONS) [Concomitant]

REACTIONS (3)
  - THROMBOCYTOPENIA [None]
  - NEUTROPENIA [None]
  - CHOLECYSTITIS INFECTIVE [None]
